FAERS Safety Report 7449655-8 (Version None)
Quarter: 2011Q1

REPORT INFORMATION
  Report Type: 
  Country: None (occurrence: None)
  Receive Date: 20110302
  Receipt Date: 20101202
  Transmission Date: 20110831
  Serious: No
  Sender: FDA-Public Use
  Company Number: 023148

PATIENT
  Sex: Male
  Weight: 74 kg

DRUGS (8)
  1. PLAVIX [Concomitant]
  2. LANSOPRAZOLE [Concomitant]
  3. ISOSORBIDE DINITRATE [Concomitant]
  4. VITAMIN B-12 [Concomitant]
  5. CIMZIA [Suspect]
     Indication: CROHN'S DISEASE
     Dosage: TWO SHOTS,  EVERY TWO WEEKS THEN MONTHLY SUBCUTANEOUS
     Route: 058
     Dates: start: 20101103
  6. AMLODIPINE BESYLATE [Concomitant]
  7. ZETIA [Concomitant]
  8. METOPROLOL SUCCINATE [Concomitant]

REACTIONS (4)
  - OROPHARYNGEAL PAIN [None]
  - LUNG INFECTION [None]
  - COUGH [None]
  - UNEVALUABLE EVENT [None]
